FAERS Safety Report 14224032 (Version 1)
Quarter: 2017Q4

REPORT INFORMATION
  Report Type: Spontaneous
  Country: IN (occurrence: IN)
  Receive Date: 20171123
  Receipt Date: 20171123
  Transmission Date: 20180321
  Serious: Yes (Other)
  Sender: FDA-Public Use
  Company Number: None

PATIENT
  Age: 6 Year
  Sex: Female
  Weight: 30 kg

DRUGS (1)
  1. SOLVIN (BROMHEXINE HYDROCHLORIDE) [Suspect]
     Active Substance: BROMHEXINE HYDROCHLORIDE
     Indication: NASOPHARYNGITIS
     Dosage: ?          QUANTITY:3.5 TABLESPOON(S);?
     Route: 048
     Dates: start: 20171119, end: 20171121

REACTIONS (2)
  - Skin lesion [None]
  - Erythema [None]

NARRATIVE: CASE EVENT DATE: 20171122
